FAERS Safety Report 9971836 (Version 1)
Quarter: 2014Q1

REPORT INFORMATION
  Report Type: Report from Study
  Country: US (occurrence: US)
  Receive Date: 20140306
  Receipt Date: 20140306
  Transmission Date: 20141002
  Serious: No
  Sender: FDA-Public Use
  Company Number: US-ABBVIE-13P-163-1152263-00

PATIENT
  Age: 41 Year
  Sex: Female
  Weight: 59.02 kg

DRUGS (5)
  1. HUMIRA [Suspect]
     Indication: COLITIS ULCERATIVE
     Route: 058
     Dates: start: 201209
  2. DELZICOL [Concomitant]
     Indication: COLITIS ULCERATIVE
  3. ENTOCORT [Concomitant]
     Indication: COLITIS ULCERATIVE
  4. ROBINUL [Concomitant]
     Indication: COLITIS ULCERATIVE
  5. TRIAM [Concomitant]
     Indication: HYPERTENSION

REACTIONS (2)
  - Diarrhoea [Not Recovered/Not Resolved]
  - Drug ineffective [Not Recovered/Not Resolved]
